FAERS Safety Report 9757686 (Version 3)
Quarter: 2014Q1

REPORT INFORMATION
  Report Type: Spontaneous
  Country: US (occurrence: US)
  Receive Date: 20131216
  Receipt Date: 20140203
  Transmission Date: 20141002
  Serious: Yes (Hospitalization)
  Sender: FDA-Public Use
  Company Number: US-BIOGENIDEC-2013BI116644

PATIENT
  Age: 44 Year
  Sex: Female

DRUGS (1)
  1. TYSABRI [Suspect]
     Indication: MULTIPLE SCLEROSIS
     Route: 042
     Dates: start: 20130501, end: 20130904

REACTIONS (4)
  - Metabolic encephalopathy [Recovered/Resolved]
  - Urosepsis [Recovered/Resolved]
  - Haematuria [Recovered/Resolved]
  - Aphasia [Not Recovered/Not Resolved]
